FAERS Safety Report 6780273-0 (Version None)
Quarter: 2010Q2

REPORT INFORMATION
  Report Type: 
  Country: None (occurrence: None)
  Receive Date: 20100618
  Receipt Date: 20100423
  Transmission Date: 20101027
  Serious: Yes (Other)
  Sender: FDA-Public Use
  Company Number: BE-ABBOTT-10P-013-0650409-00

PATIENT
  Sex: Female

DRUGS (12)
  1. HUMIRA [Suspect]
     Indication: RHEUMATOID ARTHRITIS
     Route: 058
     Dates: start: 20040809, end: 20060822
  2. HUMIRA [Suspect]
     Route: 058
     Dates: start: 20060822, end: 20080714
  3. COMMERCIAL HUMIRA [Concomitant]
     Indication: RHEUMATOID ARTHRITIS
     Dates: start: 20040525
  4. ALLOCHRYSINE [Concomitant]
     Indication: RHEUMATOID ARTHRITIS
  5. SELOKEN [Concomitant]
     Indication: MYOCARDIAL ISCHAEMIA
     Route: 048
  6. SELOZOK [Concomitant]
     Indication: HYPERTENSION
     Route: 048
  7. NAPROSYN [Concomitant]
     Indication: RHEUMATOID ARTHRITIS
     Route: 048
  8. ACETAMINOPHEN [Concomitant]
     Indication: ARTHRALGIA
     Route: 048
  9. VITAMIN D [Concomitant]
     Indication: MINERAL SUPPLEMENTATION
     Route: 048
  10. LEVOTHYROXINE SODIUM [Concomitant]
     Indication: HYPOTHYROIDISM
     Route: 048
     Dates: start: 19970701
  11. LOSEC I.V. [Concomitant]
     Indication: GASTROOESOPHAGITIS
     Route: 048
     Dates: start: 20020315
  12. MOLSIDOMINE [Concomitant]
     Indication: HYPERTENSION
     Route: 048
     Dates: start: 20020426

REACTIONS (1)
  - RENAL FAILURE ACUTE [None]
